FAERS Safety Report 6972627-4 (Version None)
Quarter: 2010Q3

REPORT INFORMATION
  Report Type: 
  Country: None (occurrence: None)
  Receive Date: 20100907
  Receipt Date: 20100827
  Transmission Date: 20110219
  Serious: Yes (Death)
  Sender: FDA-Public Use
  Company Number: 012814

PATIENT
  Sex: Male

DRUGS (6)
  1. LACOSAMIDE [Suspect]
     Indication: CONVULSION
     Dosage: (100 MG BID ORAL), (50 MG BID)
     Route: 048
     Dates: start: 20100318
  2. KEPPRA [Concomitant]
  3. TEGRETOL [Concomitant]
  4. DILANTIN [Concomitant]
  5. ENALAPRIL [Concomitant]
  6. VASOTEC [Concomitant]

REACTIONS (1)
  - ARRHYTHMIA [None]
